FAERS Safety Report 12765427 (Version 1)
Quarter: 2016Q3

REPORT INFORMATION
  Report Type: Spontaneous
  Country: CO (occurrence: CO)
  Receive Date: 20160921
  Receipt Date: 20160921
  Transmission Date: 20161109
  Serious: Yes (Other)
  Sender: FDA-Public Use
  Company Number: CO-ALEMBIC PHARMACUETICALS LIMITED-2016SCAL000741

PATIENT

DRUGS (1)
  1. VENLAFAXINE HYDROCHLORIDE. [Suspect]
     Active Substance: VENLAFAXINE HYDROCHLORIDE
     Indication: PRODUCT USED FOR UNKNOWN INDICATION
     Dosage: 2100 MG, SINGLE OVERDOSE
     Route: 048

REACTIONS (3)
  - Stress cardiomyopathy [Unknown]
  - Suicide attempt [Unknown]
  - Overdose [Unknown]
